FAERS Safety Report 8607104 (Version 3)
Quarter: 2014Q1

REPORT INFORMATION
  Report Type: Spontaneous
  Country: US (occurrence: US)
  Receive Date: 20120611
  Receipt Date: 20140115
  Transmission Date: 20141002
  Serious: Yes (Disabling, Other)
  Sender: FDA-Public Use
  Company Number: US-ASTRAZENECA-2012SE36241

PATIENT
  Age: 52 Year
  Sex: Male

DRUGS (23)
  1. NEXIUM [Suspect]
     Indication: GASTROOESOPHAGEAL REFLUX DISEASE
     Dosage: ONE OR TWO TIMES A DAY
     Route: 048
     Dates: start: 20011029, end: 201112
  2. NEXIUM [Suspect]
     Indication: GASTROOESOPHAGEAL REFLUX DISEASE
     Dosage: ONE OR TWO TIMES A DAY
     Route: 048
     Dates: start: 20011029, end: 201112
  3. NEXIUM [Suspect]
     Indication: GASTROOESOPHAGEAL REFLUX DISEASE
     Route: 048
     Dates: start: 20020808
  4. NEXIUM [Suspect]
     Indication: GASTROOESOPHAGEAL REFLUX DISEASE
     Route: 048
     Dates: start: 20020808
  5. NEXIUM [Suspect]
     Indication: GASTROOESOPHAGEAL REFLUX DISEASE
     Dosage: ONCE A DAY AT TIME TWO TIME A DAY
     Route: 048
     Dates: start: 2004, end: 2011
  6. NEXIUM [Suspect]
     Indication: GASTROOESOPHAGEAL REFLUX DISEASE
     Dosage: ONCE A DAY AT TIME TWO TIME A DAY
     Route: 048
     Dates: start: 2004, end: 2011
  7. NEXIUM [Suspect]
     Indication: GASTROOESOPHAGEAL REFLUX DISEASE
     Route: 048
     Dates: start: 20101218
  8. NEXIUM [Suspect]
     Indication: GASTROOESOPHAGEAL REFLUX DISEASE
     Route: 048
     Dates: start: 20101218
  9. MILK OF MAGNESIA [Concomitant]
  10. LIPITOR [Concomitant]
  11. METOPROLOL [Concomitant]
  12. FISH OIL [Concomitant]
  13. ASPIRIN [Concomitant]
  14. TRAMADOL [Concomitant]
  15. LISINOPRIL [Concomitant]
  16. DEXIL [Concomitant]
  17. NIASPAN [Concomitant]
  18. ENDOCET [Concomitant]
     Dosage: 5-325 MG
  19. DICYCLOMINE [Concomitant]
  20. RANITIDINE [Concomitant]
  21. VESICARE [Concomitant]
  22. VALACYCLOVIR HCL [Concomitant]
  23. PREVACID [Concomitant]

REACTIONS (9)
  - Ankle fracture [Unknown]
  - Rib fracture [Unknown]
  - Spinal osteoarthritis [Unknown]
  - Intervertebral disc protrusion [Unknown]
  - Vertebral foraminal stenosis [Unknown]
  - Osteoporosis [Unknown]
  - Wrist fracture [Unknown]
  - Radius fracture [Unknown]
  - Vitamin D deficiency [Unknown]
